FAERS Safety Report 4385184-6 (Version None)
Quarter: 2004Q2

REPORT INFORMATION
  Report Type: 
  Country: None (occurrence: None)
  Receive Date: 20040607
  Receipt Date: 20031119
  Transmission Date: 20050107
  Serious: Yes (Other)
  Sender: FDA-Public Use
  Company Number: 352286

PATIENT

DRUGS (2)
  1. ACCUTANE [Suspect]
     Indication: DRUG USE FOR UNKNOWN INDICATION
     Dosage: 80 MG DAILY
     Dates: end: 20030915
  2. JASMINE (DROSPIRENONE/ETHINYL ESTRADIOL) [Concomitant]

REACTIONS (2)
  - NO ADVERSE EFFECT [None]
  - PREGNANCY [None]
